FAERS Safety Report 17114386 (Version 1)
Quarter: 2019Q4

REPORT INFORMATION
  Report Type: Spontaneous
  Country: US (occurrence: US)
  Receive Date: 20191205
  Receipt Date: 20191205
  Transmission Date: 20200122
  Serious: Yes (Hospitalization)
  Sender: FDA-Public Use
  Company Number: US-ZYDUS-044195

PATIENT
  Age: 32 Year
  Sex: Female

DRUGS (13)
  1. METRONIDAZOLE. [Suspect]
     Active Substance: METRONIDAZOLE
     Indication: LYME DISEASE
     Route: 048
  2. AZITHROMYCIN ANHYDROUS. [Suspect]
     Active Substance: AZITHROMYCIN ANHYDROUS
     Indication: PNEUMONIA
  3. MEROPENEM. [Suspect]
     Active Substance: MEROPENEM
     Indication: LYME DISEASE
     Route: 042
  4. CIPROFLOXACIN/CIPROFLOXACIN HYDROCHLORIDE/CIPROFLOXACIN LACTATE [Suspect]
     Active Substance: CIPROFLOXACIN
     Indication: LYME DISEASE
     Route: 042
  5. CIPROFLOXACIN/CIPROFLOXACIN HYDROCHLORIDE/CIPROFLOXACIN LACTATE [Suspect]
     Active Substance: CIPROFLOXACIN
     Indication: LYME DISEASE
     Route: 042
  6. AZITHROMYCIN ANHYDROUS. [Suspect]
     Active Substance: AZITHROMYCIN ANHYDROUS
     Indication: PNEUMONIA
     Route: 042
  7. CLINDAMYCIN. [Suspect]
     Active Substance: CLINDAMYCIN
     Indication: LYME DISEASE
     Route: 042
  8. RIFABUTIN. [Suspect]
     Active Substance: RIFABUTIN
     Indication: LYME DISEASE
     Route: 048
  9. TIGECYCLINE. [Suspect]
     Active Substance: TIGECYCLINE
     Indication: LYME DISEASE
     Route: 042
  10. MEROPENEM. [Suspect]
     Active Substance: MEROPENEM
     Indication: LYME DISEASE
  11. CIPROFLOXACIN/CIPROFLOXACIN HYDROCHLORIDE/CIPROFLOXACIN LACTATE [Suspect]
     Active Substance: CIPROFLOXACIN
     Indication: LYME DISEASE
     Route: 048
  12. AZITHROMYCIN ANHYDROUS. [Suspect]
     Active Substance: AZITHROMYCIN ANHYDROUS
     Indication: PNEUMONIA
     Route: 048
  13. MEROPENEM. [Suspect]
     Active Substance: MEROPENEM
     Indication: LYME DISEASE
     Route: 042

REACTIONS (5)
  - Mycobacterial infection [Unknown]
  - Pathogen resistance [Unknown]
  - Leukocytosis [Unknown]
  - Pyrexia [Unknown]
  - Fatigue [Unknown]
